FAERS Safety Report 8951254 (Version 4)
Quarter: 2013Q4

REPORT INFORMATION
  Report Type: Report from Study
  Country: NL (occurrence: NL)
  Receive Date: 20121207
  Receipt Date: 20131022
  Transmission Date: 20140711
  Serious: Yes (Hospitalization, Other)
  Sender: FDA-Public Use
  Company Number: NL-BIOGENIDEC-2012BI057260

PATIENT
  Age: 52 Year
  Sex: Female
  Weight: 82 kg

DRUGS (2)
  1. TYSABRI [Suspect]
     Indication: RELAPSING-REMITTING MULTIPLE SCLEROSIS
     Route: 042
     Dates: start: 20070913
  2. FAMPYRA [Concomitant]
     Dates: end: 2012

REACTIONS (4)
  - Glomerulonephritis rapidly progressive [Unknown]
  - Normochromic normocytic anaemia [Unknown]
  - Pneumonia [Recovered/Resolved]
  - Renal failure [Not Recovered/Not Resolved]
